FAERS Safety Report 9051092 (Version 4)
Quarter: 2013Q1

REPORT INFORMATION
  Report Type: Spontaneous
  Country: US (occurrence: US)
  Receive Date: 20130206
  Receipt Date: 20130306
  Transmission Date: 20140127
  Serious: Yes (Death)
  Sender: FDA-Public Use
  Company Number: US-PFIZER INC-2013044118

PATIENT
  Age: 43 Year
  Sex: Female

DRUGS (1)
  1. INLYTA [Suspect]
     Indication: ADRENOCORTICAL CARCINOMA
     Dosage: 10 MG, UNK
     Route: 048
     Dates: start: 20120720, end: 20130102

REACTIONS (2)
  - Disease progression [Fatal]
  - Adrenocortical carcinoma [Fatal]
